FAERS Safety Report 25626729 (Version 1)
Quarter: 2025Q3

REPORT INFORMATION
  Report Type: Spontaneous
  Country: US (occurrence: US)
  Receive Date: 20250731
  Receipt Date: 20250731
  Transmission Date: 20251021
  Serious: Yes (Other)
  Sender: MYLAN
  Company Number: US-MYLANLABS-2025M1062781

PATIENT
  Age: 6 Decade
  Sex: Female

DRUGS (28)
  1. CYCLOSPORINE [Suspect]
     Active Substance: CYCLOSPORINE
     Indication: Psoriasis
  2. CYCLOSPORINE [Suspect]
     Active Substance: CYCLOSPORINE
     Indication: Psoriatic arthropathy
     Route: 065
  3. CYCLOSPORINE [Suspect]
     Active Substance: CYCLOSPORINE
     Route: 065
  4. CYCLOSPORINE [Suspect]
     Active Substance: CYCLOSPORINE
  5. METHOTREXATE [Suspect]
     Active Substance: METHOTREXATE
     Indication: Psoriasis
  6. METHOTREXATE [Suspect]
     Active Substance: METHOTREXATE
     Indication: Psoriatic arthropathy
     Route: 065
  7. METHOTREXATE [Suspect]
     Active Substance: METHOTREXATE
     Route: 065
  8. METHOTREXATE [Suspect]
     Active Substance: METHOTREXATE
  9. RISANKIZUMAB [Suspect]
     Active Substance: RISANKIZUMAB
     Indication: Psoriasis
  10. RISANKIZUMAB [Suspect]
     Active Substance: RISANKIZUMAB
     Indication: Psoriatic arthropathy
     Route: 065
  11. RISANKIZUMAB [Suspect]
     Active Substance: RISANKIZUMAB
     Route: 065
  12. RISANKIZUMAB [Suspect]
     Active Substance: RISANKIZUMAB
  13. SECUKINUMAB [Suspect]
     Active Substance: SECUKINUMAB
     Indication: Psoriasis
  14. SECUKINUMAB [Suspect]
     Active Substance: SECUKINUMAB
     Indication: Psoriatic arthropathy
     Route: 065
  15. SECUKINUMAB [Suspect]
     Active Substance: SECUKINUMAB
     Route: 065
  16. SECUKINUMAB [Suspect]
     Active Substance: SECUKINUMAB
  17. ADALIMUMAB [Suspect]
     Active Substance: ADALIMUMAB
     Indication: Psoriasis
  18. ADALIMUMAB [Suspect]
     Active Substance: ADALIMUMAB
     Indication: Psoriatic arthropathy
     Route: 065
  19. ADALIMUMAB [Suspect]
     Active Substance: ADALIMUMAB
     Route: 065
  20. ADALIMUMAB [Suspect]
     Active Substance: ADALIMUMAB
  21. BRODALUMAB [Suspect]
     Active Substance: BRODALUMAB
     Indication: Psoriasis
  22. BRODALUMAB [Suspect]
     Active Substance: BRODALUMAB
     Indication: Psoriatic arthropathy
     Route: 065
  23. BRODALUMAB [Suspect]
     Active Substance: BRODALUMAB
     Route: 065
  24. BRODALUMAB [Suspect]
     Active Substance: BRODALUMAB
  25. UPADACITINIB [Suspect]
     Active Substance: UPADACITINIB
     Indication: Psoriasis
  26. UPADACITINIB [Suspect]
     Active Substance: UPADACITINIB
     Indication: Psoriatic arthropathy
     Route: 065
  27. UPADACITINIB [Suspect]
     Active Substance: UPADACITINIB
     Route: 065
  28. UPADACITINIB [Suspect]
     Active Substance: UPADACITINIB

REACTIONS (2)
  - Treatment failure [Unknown]
  - Off label use [Unknown]
